FAERS Safety Report 7270554-9 (Version None)
Quarter: 2011Q1

REPORT INFORMATION
  Report Type: 
  Country: None (occurrence: None)
  Receive Date: 20110202
  Receipt Date: 20110201
  Transmission Date: 20110831
  Serious: Yes (Other)
  Sender: FDA-Public Use
  Company Number: A0911150A

PATIENT
  Age: 40 Year
  Sex: Female

DRUGS (6)
  1. OXYCODONE HCL [Concomitant]
     Indication: PAIN
     Route: 048
  2. OGEN [Concomitant]
     Indication: OSTEOPOROSIS
     Route: 048
  3. MORPHINE [Concomitant]
     Indication: PAIN
     Route: 048
  4. ALLI [Suspect]
     Indication: WEIGHT LOSS DIET
     Route: 048
     Dates: start: 20110101, end: 20110130
  5. WELLBUTRIN [Concomitant]
     Indication: DEPRESSION
     Route: 048
  6. CLONOPIN [Concomitant]
     Indication: ANXIETY
     Route: 048

REACTIONS (3)
  - RECTAL DISCHARGE [None]
  - HAEMATOCHEZIA [None]
  - FLATULENCE [None]
